FAERS Safety Report 5069867-0 (Version None)
Quarter: 2006Q3

REPORT INFORMATION
  Report Type: 
  Country: None (occurrence: None)
  Receive Date: 20060719
  Receipt Date: 20060706
  Transmission Date: 20061208
  Serious: Yes (Other)
  Sender: FDA-Public Use
  Company Number: 200111243BFR

PATIENT
  Age: 53 Year
  Sex: Male

DRUGS (4)
  1. KOGENATE BAYER (FACTOR VIII ANTIHAEMOPHILIC FACTOR)) [Suspect]
     Indication: FACTOR VIII DEFICIENCY
     Dosage: SEE IMAGE
     Route: 042
     Dates: start: 20011101
  2. KOGENATE BAYER (FACTOR VIII ANTIHAEMOPHILIC FACTOR)) [Suspect]
     Indication: FACTOR VIII DEFICIENCY
     Dosage: SEE IMAGE
     Route: 042
     Dates: start: 20011101
  3. FACTOR VIII N.O.S. [Concomitant]
  4. FACTANE (FACTOR VIII, HUMAN) [Concomitant]

REACTIONS (1)
  - COAGULATION FACTOR VIII LEVEL DECREASED [None]
